FAERS Safety Report 21563845 (Version 1)
Quarter: 2022Q4

REPORT INFORMATION
  Report Type: Spontaneous
  Country: TR (occurrence: TR)
  Receive Date: 20221108
  Receipt Date: 20221108
  Transmission Date: 20230112
  Serious: Yes (Other)
  Sender: FDA-Public Use
  Company Number: TR-MSNLABS-2022MSNLIT01330

PATIENT

DRUGS (1)
  1. CAPECITABINE [Suspect]
     Active Substance: CAPECITABINE
     Indication: Carcinoid tumour of the pancreas
     Route: 065
     Dates: start: 202008

REACTIONS (4)
  - Disease progression [Unknown]
  - Metastases to liver [Unknown]
  - Inferior vena cava syndrome [Unknown]
  - Metastases to lymph nodes [Unknown]
